FAERS Safety Report 22032278 (Version 1)
Quarter: 2023Q1

REPORT INFORMATION
  Report Type: Spontaneous
  Country: US (occurrence: US)
  Receive Date: 20230224
  Receipt Date: 20230224
  Transmission Date: 20230418
  Serious: Yes (Other)
  Sender: FDA-Public Use
  Company Number: US-MLMSERVICE-20230209-4092109-1

PATIENT
  Sex: Female

DRUGS (4)
  1. DEXAMETHASONE [Suspect]
     Active Substance: DEXAMETHASONE
     Indication: Nausea
     Dosage: UNK
     Route: 065
  2. OLAPARIB [Concomitant]
     Active Substance: OLAPARIB
     Indication: Gastrointestinal stromal tumour
     Dosage: 1400 MILLIGRAM (200 MG TWICE A DAY X 7 DAYS IN 21-DAY CYCLES)
     Route: 065
  3. TEMOZOLOMIDE [Concomitant]
     Active Substance: TEMOZOLOMIDE
     Indication: Gastrointestinal stromal tumour
     Dosage: 525 MILLIGRAM/SQ. METER (75 MG/M2/D X 7 DAYS IN 21-DAY CYCLES)
     Route: 065
  4. TEMOZOLOMIDE [Concomitant]
     Active Substance: TEMOZOLOMIDE
     Dosage: UNK (DOSE WAS REDUCED IN CYCLE 2)
     Route: 065

REACTIONS (1)
  - Substance-induced psychotic disorder [Unknown]
